FAERS Safety Report 23315458 (Version 1)
Quarter: 2023Q4

REPORT INFORMATION
  Report Type: Spontaneous
  Country: FI (occurrence: FI)
  Receive Date: 20231219
  Receipt Date: 20231219
  Transmission Date: 20240110
  Serious: Yes (Other)
  Sender: FDA-Public Use
  Company Number: None

PATIENT
  Age: 39 Year
  Sex: Male

DRUGS (1)
  1. ESCITALOPRAM [Suspect]
     Active Substance: ESCITALOPRAM OXALATE
     Indication: Anxiety disorder
     Dosage: 20-40,MG,DAILY
     Route: 065
     Dates: start: 20100101, end: 20231118

REACTIONS (11)
  - Erectile dysfunction [Recovering/Resolving]
  - Skin odour abnormal [Recovering/Resolving]
  - Haematoma [Recovering/Resolving]
  - Polydipsia [Recovering/Resolving]
  - Decreased activity [Recovering/Resolving]
  - Emotional poverty [Recovering/Resolving]
  - Depressed mood [Recovering/Resolving]
  - Loss of libido [Recovering/Resolving]
  - Hyperhidrosis [Recovering/Resolving]
  - Dry mouth [Recovering/Resolving]
  - Intentional overdose [Recovering/Resolving]

NARRATIVE: CASE EVENT DATE: 20200101
